FAERS Safety Report 7180721-0 (Version None)
Quarter: 2010Q4

REPORT INFORMATION
  Report Type: 
  Country: None (occurrence: None)
  Receive Date: 20101221
  Receipt Date: 20101215
  Transmission Date: 20110411
  Serious: Yes (Hospitalization)
  Sender: FDA-Public Use
  Company Number: FR-ABBOTT-10P-056-0691614-00

PATIENT
  Age: 2 Year
  Sex: Male

DRUGS (3)
  1. MICROPAKINE L.P. [Suspect]
     Indication: EPILEPSY
     Dosage: DAILY
     Route: 048
     Dates: start: 20100101, end: 20100501
  2. URBANYL [Suspect]
     Indication: EPILEPSY
     Dosage: DAILY
     Route: 048
     Dates: start: 20100401, end: 20100501
  3. TOPIRAMATE [Suspect]
     Indication: EPILEPSY
     Route: 048
     Dates: start: 20100401, end: 20100501

REACTIONS (2)
  - ATAXIA [None]
  - FALL [None]
